FAERS Safety Report 8328372-6 (Version None)
Quarter: 2012Q2

REPORT INFORMATION
  Report Type: 
  Country: None (occurrence: None)
  Receive Date: 20120417
  Receipt Date: 20120307
  Transmission Date: 20120825
  Serious: Yes (Other)
  Sender: FDA-Public Use
  Company Number: 2012031527

PATIENT
  Age: 57 Year
  Sex: Female
  Weight: 47.6277 kg

DRUGS (10)
  1. ALBUTEROL [Concomitant]
  2. PREVACID [Concomitant]
  3. ADVAIR HFA [Concomitant]
  4. IBUPROFEN [Concomitant]
  5. MULTI-VITAMIN [Concomitant]
  6. FLONASE [Concomitant]
  7. HIZENTRA [Suspect]
     Indication: IMMUNODEFICIENCY COMMON VARIABLE
     Dosage: 8 G 1X/WEEK, 8G WEEKLY IN 2 TO 3 SITES OVER 1 HOUR SUBCUTANEOUS)
     Route: 058
     Dates: start: 20120302, end: 20120302
  8. XANAX [Concomitant]
  9. ACETAMINOPHEN [Concomitant]
  10. MUCINEX [Concomitant]

REACTIONS (9)
  - INFUSION SITE OEDEMA [None]
  - NAUSEA [None]
  - BACK PAIN [None]
  - APHAGIA [None]
  - FATIGUE [None]
  - INFUSION SITE ERYTHEMA [None]
  - INFUSION SITE MASS [None]
  - PRURITUS [None]
  - MALAISE [None]
